FAERS Safety Report 24676940 (Version 1)
Quarter: 2024Q4

REPORT INFORMATION
  Report Type: Spontaneous
  Country: FR (occurrence: FR)
  Receive Date: 20241128
  Receipt Date: 20241128
  Transmission Date: 20250114
  Serious: Yes (Hospitalization)
  Sender: GLAXOSMITHKLINE
  Company Number: None

PATIENT

DRUGS (1)
  1. LAMICTAL [Suspect]
     Active Substance: LAMOTRIGINE
     Indication: Schizophrenia
     Dosage: 75 MG
     Route: 048
     Dates: start: 20240323, end: 20240423

REACTIONS (1)
  - Overlap syndrome [Recovered/Resolved]

NARRATIVE: CASE EVENT DATE: 20240422
